FAERS Safety Report 7557876-9 (Version None)
Quarter: 2011Q2

REPORT INFORMATION
  Report Type: 
  Country: None (occurrence: None)
  Receive Date: 20110620
  Receipt Date: 20110602
  Transmission Date: 20111010
  Serious: Yes (Hospitalization)
  Sender: FDA-Public Use
  Company Number: A0807701A

PATIENT
  Age: 78 Year
  Sex: Female
  Weight: 86.4 kg

DRUGS (11)
  1. MOBIC [Concomitant]
  2. METFORMIN HCL [Concomitant]
  3. SPIRIVA [Concomitant]
  4. PREDNISONE [Concomitant]
  5. METHOTREXATE [Concomitant]
  6. PLAQUENIL [Concomitant]
  7. ACIPHEX [Concomitant]
  8. ADVAIR DISKUS 100/50 [Concomitant]
  9. GLIPIZIDE [Concomitant]
  10. AVANDIA [Suspect]
     Indication: TYPE 2 DIABETES MELLITUS
     Dosage: 4MG PER DAY
     Route: 048
     Dates: start: 20020101, end: 20070401
  11. CRESTOR [Concomitant]

REACTIONS (18)
  - MYOCARDIAL INFARCTION [None]
  - CARDIAC FAILURE CONGESTIVE [None]
  - SMALL INTESTINAL OBSTRUCTION [None]
  - RENAL FAILURE ACUTE [None]
  - GASTROINTESTINAL HAEMORRHAGE [None]
  - PERICARDIAL EFFUSION [None]
  - ANXIETY [None]
  - MITRAL VALVE CALCIFICATION [None]
  - CEREBROVASCULAR ACCIDENT [None]
  - DEPRESSION [None]
  - GASTRITIS [None]
  - ATRIAL FIBRILLATION [None]
  - PLEURAL EFFUSION [None]
  - LUNG INFILTRATION [None]
  - DEMENTIA [None]
  - ANAEMIA [None]
  - ATELECTASIS [None]
  - TRANSIENT ISCHAEMIC ATTACK [None]
